FAERS Safety Report 25671084 (Version 3)
Quarter: 2025Q3

REPORT INFORMATION
  Report Type: Spontaneous
  Country: UA (occurrence: UA)
  Receive Date: 20250812
  Receipt Date: 20250903
  Transmission Date: 20251020
  Serious: Yes (Death, Other)
  Sender: BAYER HEALTHCARE PHARMACEUTICALS INC.
  Company Number: UA-BAYER-2025A106476

PATIENT
  Age: 62 Year
  Sex: Female

DRUGS (6)
  1. ULTRAVIST [Suspect]
     Active Substance: IOPROMIDE
     Indication: Computerised tomogram
     Dates: start: 20250729
  2. ULTRAVIST [Suspect]
     Active Substance: IOPROMIDE
     Indication: Plasma cell myeloma
  3. OMEPRAZOLE [Concomitant]
     Active Substance: OMEPRAZOLE
     Dosage: 40 MG, QD
     Route: 048
     Dates: start: 20250728, end: 20250729
  4. DEXAMETHASONE [Concomitant]
     Active Substance: DEXAMETHASONE
     Dosage: 2 MG, TID
     Dates: start: 20250729, end: 20250729
  5. SODIUM CHLORIDE [Concomitant]
     Active Substance: SODIUM CHLORIDE
     Dosage: 500 ML, QD
     Dates: start: 20250729, end: 20250729
  6. Flenox [Concomitant]
     Dosage: .6 MG, QD
     Dates: start: 20250729, end: 20250729

REACTIONS (5)
  - Pulmonary embolism [Fatal]
  - Dyspnoea [Fatal]
  - Cyanosis [Fatal]
  - Blood pressure decreased [Fatal]
  - Suspected product quality issue [None]

NARRATIVE: CASE EVENT DATE: 20250729
